FAERS Safety Report 6956453-8 (Version None)
Quarter: 2010Q3

REPORT INFORMATION
  Report Type: 
  Country: None (occurrence: None)
  Receive Date: 20100830
  Receipt Date: 20100823
  Transmission Date: 20110219
  Serious: Yes (Disabling)
  Sender: FDA-Public Use
  Company Number: GB-BAYER-201037124GPV

PATIENT
  Age: 27 Year
  Sex: Male
  Weight: 81 kg

DRUGS (3)
  1. CIPROXIN [Suspect]
     Indication: ANAL ABSCESS
     Dosage: TOTAL DAILY DOSE: 1000 MG
     Dates: start: 20100731, end: 20100808
  2. EPILIM CHRONO [Concomitant]
     Indication: EPILEPSY
     Route: 048
     Dates: start: 20031009
  3. INFLIXIMAB [Concomitant]
     Indication: CROHN'S DISEASE
     Route: 042
     Dates: start: 20070701

REACTIONS (3)
  - DISINHIBITION [None]
  - DISORIENTATION [None]
  - EPILEPSY [None]
